FAERS Safety Report 5527585-6 (Version None)
Quarter: 2007Q4

REPORT INFORMATION
  Report Type: 
  Country: None (occurrence: None)
  Receive Date: 20071128
  Receipt Date: 20071114
  Transmission Date: 20080405
  Serious: Yes (Hospitalization)
  Sender: FDA-Public Use
  Company Number: JP-ELI_LILLY_AND_COMPANY-JP200710002059

PATIENT
  Sex: Male
  Weight: 61 kg

DRUGS (1)
  1. GEMCITABINE HCL [Suspect]
     Indication: GALLBLADDER CANCER STAGE IV
     Dosage: 1600 MG, OTHER
     Route: 042
     Dates: start: 20070810, end: 20070913

REACTIONS (3)
  - DEHYDRATION [None]
  - ENTEROCOLITIS [None]
  - RENAL FAILURE [None]
